FAERS Safety Report 7371710-1 (Version None)
Quarter: 2011Q1

REPORT INFORMATION
  Report Type: 
  Country: None (occurrence: None)
  Receive Date: 20110324
  Receipt Date: 20110311
  Transmission Date: 20110831
  Serious: Yes (Hospitalization)
  Sender: FDA-Public Use
  Company Number: PHFR2011GB01308

PATIENT
  Sex: Female

DRUGS (7)
  1. CLOZARIL [Suspect]
     Dosage: UNK
  2. ARIPIPRAZOLE [Concomitant]
  3. CLONIDINE [Concomitant]
  4. FENTANYL [Concomitant]
  5. NORADRENALINE [Concomitant]
  6. DIAZEPAM [Concomitant]
  7. CLOZARIL [Suspect]
     Indication: SCHIZOPHRENIA
     Dosage: 200 MG AM, 100 MG NIGHT
     Route: 048
     Dates: start: 20090130

REACTIONS (6)
  - LUNG CONSOLIDATION [None]
  - APPENDICITIS PERFORATED [None]
  - SEPSIS [None]
  - COMA [None]
  - GASTROINTESTINAL HAEMORRHAGE [None]
  - ANTIPSYCHOTIC DRUG LEVEL INCREASED [None]
